FAERS Safety Report 23405302 (Version 1)
Quarter: 2024Q1

REPORT INFORMATION
  Report Type: Report from Study
  Country: US (occurrence: US)
  Receive Date: 20240116
  Receipt Date: 20240116
  Transmission Date: 20240409
  Serious: Yes (Hospitalization, Other)
  Sender: FDA-Public Use
  Company Number: US-ASTELLAS-2024US000931

PATIENT
  Sex: Male

DRUGS (4)
  1. ENZALUTAMIDE [Suspect]
     Active Substance: ENZALUTAMIDE
     Indication: Prostate cancer
     Route: 048
     Dates: start: 20100712
  2. ENZALUTAMIDE [Suspect]
     Active Substance: ENZALUTAMIDE
     Indication: Prostate cancer
     Route: 048
     Dates: end: 202305
  3. ENZALUTAMIDE [Suspect]
     Active Substance: ENZALUTAMIDE
     Route: 048
     Dates: start: 202306, end: 20230701
  4. ENZALUTAMIDE [Suspect]
     Active Substance: ENZALUTAMIDE
     Dosage: 160 MG, ONCE DAILY (IN THE MORNING)
     Route: 048
     Dates: start: 20230710

REACTIONS (13)
  - Reactive gastropathy [Not Recovered/Not Resolved]
  - Oesophagitis chemical [Not Recovered/Not Resolved]
  - Chemical burn of respiratory tract [Not Recovered/Not Resolved]
  - Lower limb fracture [Recovering/Resolving]
  - Fall [Recovering/Resolving]
  - Multiple fractures [Recovering/Resolving]
  - Cough [Not Recovered/Not Resolved]
  - Eructation [Not Recovered/Not Resolved]
  - Dysphonia [Not Recovered/Not Resolved]
  - Prostatic specific antigen increased [Recovering/Resolving]
  - Gait disturbance [Not Recovered/Not Resolved]
  - Post procedural complication [Not Recovered/Not Resolved]
  - Limb asymmetry [Not Recovered/Not Resolved]

NARRATIVE: CASE EVENT DATE: 20230101
